FAERS Safety Report 25844063 (Version 1)
Quarter: 2025Q3

REPORT INFORMATION
  Report Type: Spontaneous
  Country: EU (occurrence: EU)
  Receive Date: 20250925
  Receipt Date: 20250925
  Transmission Date: 20251021
  Serious: Yes (Death, Other)
  Sender: AMGEN
  Company Number: EU-AMGEN-DEUSP2025186726

PATIENT

DRUGS (2)
  1. TALIMOGENE LAHERPAREPVEC [Suspect]
     Active Substance: TALIMOGENE LAHERPAREPVEC
     Indication: Malignant melanoma stage III
     Route: 036
  2. ALDESLEUKIN [Suspect]
     Active Substance: ALDESLEUKIN
     Indication: Malignant melanoma stage III
     Route: 036

REACTIONS (14)
  - Death [Fatal]
  - Sepsis [Fatal]
  - Pneumonia [Fatal]
  - Cardiac failure [Fatal]
  - Renal failure [Fatal]
  - Injury [Fatal]
  - Acute myeloid leukaemia [Fatal]
  - Hepatocellular carcinoma [Fatal]
  - Malignant melanoma [Fatal]
  - Completed suicide [Fatal]
  - Melanoma recurrent [Unknown]
  - Therapy partial responder [Unknown]
  - Adverse event [Unknown]
  - Ill-defined disorder [Unknown]
